FAERS Safety Report 15761611 (Version 4)
Quarter: 2019Q1

REPORT INFORMATION
  Report Type: Report from Study
  Country: CA (occurrence: CA)
  Receive Date: 20181226
  Receipt Date: 20190228
  Transmission Date: 20190417
  Serious: Yes (Other)
  Sender: FDA-Public Use
  Company Number: CA-GLAXOSMITHKLINE-CA2018GSK197823

PATIENT
  Sex: Female

DRUGS (4)
  1. MEPOLIZUMAB [Suspect]
     Active Substance: MEPOLIZUMAB
     Dosage: 100,MG,MONTHLY
     Route: 042
  2. MEPOLIZUMAB [Suspect]
     Active Substance: MEPOLIZUMAB
     Dosage: 100 MG, Z
     Route: 042
  3. VENTOLIN [Suspect]
     Active Substance: ALBUTEROL SULFATE
     Indication: PRODUCT USED FOR UNKNOWN INDICATION
     Dosage: 2 PUFF(S), PRN
     Route: 055
  4. MEPOLIZUMAB [Suspect]
     Active Substance: MEPOLIZUMAB
     Indication: ASTHMA
     Dosage: 100 MG, MONTHLY
     Route: 042

REACTIONS (13)
  - Injection site pain [Unknown]
  - Injection site reaction [Unknown]
  - Helicobacter infection [Unknown]
  - Injection site pruritus [Unknown]
  - Hereditary haemorrhagic telangiectasia [Unknown]
  - Injection site warmth [Unknown]
  - Lung infection [Unknown]
  - Injection site erythema [Recovered/Resolved]
  - Arteriovenous malformation [Unknown]
  - Myalgia [Unknown]
  - Pulmonary arteriovenous fistula [Unknown]
  - Arthralgia [Unknown]
  - Injection site mass [Unknown]
